FAERS Safety Report 7112334-0 (Version None)
Quarter: 2010Q4

REPORT INFORMATION
  Report Type: 
  Country: None (occurrence: None)
  Receive Date: 20101119
  Receipt Date: 20100802
  Transmission Date: 20110411
  Serious: No
  Sender: FDA-Public Use
  Company Number: A0873460A

PATIENT
  Age: 67 Year
  Sex: Male

DRUGS (5)
  1. AVODART [Suspect]
     Indication: BENIGN PROSTATIC HYPERPLASIA
     Dosage: .5MG PER DAY
     Route: 048
     Dates: start: 20050101
  2. UROXATRAL [Suspect]
     Indication: BENIGN PROSTATIC HYPERPLASIA
     Dosage: 10MG PER DAY
     Route: 048
     Dates: start: 20050101
  3. WARFARIN SODIUM [Concomitant]
  4. BENICAR [Concomitant]
  5. ZETIA [Concomitant]

REACTIONS (5)
  - DRUG EFFECT DECREASED [None]
  - POLLAKIURIA [None]
  - URINARY HESITATION [None]
  - URINARY TRACT DISORDER [None]
  - URINE FLOW DECREASED [None]
